FAERS Safety Report 24206125 (Version 1)
Quarter: 2024Q3

REPORT INFORMATION
  Report Type: Spontaneous
  Country: US (occurrence: None)
  Receive Date: 20240812
  Receipt Date: 20240812
  Transmission Date: 20241017
  Serious: Yes (Life-Threatening, Hospitalization)
  Sender: Public
  Company Number: None

PATIENT
  Age: 37 Year
  Sex: Male
  Weight: 99 kg

DRUGS (6)
  1. SILDENAFIL [Suspect]
     Active Substance: SILDENAFIL
     Indication: Sexual life impairment
     Dosage: OTHER QUANTITY : 1 TABLET(S);?FREQUENCY : AS NEEDED;?
     Route: 048
     Dates: start: 20240513, end: 20240808
  2. Loratodine [Concomitant]
  3. protein shakes [Concomitant]
  4. protein powders [Concomitant]
  5. TADALAFIL [Suspect]
     Active Substance: TADALAFIL
  6. VARDENAFIL [Suspect]
     Active Substance: VARDENAFIL HYDROCHLORIDE

REACTIONS (2)
  - Cardiac arrest [None]
  - Palpitations [None]

NARRATIVE: CASE EVENT DATE: 20240808
